FAERS Safety Report 17796919 (Version 1)
Quarter: 2020Q2

REPORT INFORMATION
  Report Type: Other
  Country: GB (occurrence: GB)
  Receive Date: 20200518
  Receipt Date: 20200518
  Transmission Date: 20200714
  Serious: No
  Sender: FDA-Public Use
  Company Number: GB-LUPIN PHARMACEUTICALS INC.-2019-03005

PATIENT
  Age: 19 Year
  Sex: Female
  Weight: 50.5 kg

DRUGS (2)
  1. PAROXETINE. [Concomitant]
     Active Substance: PAROXETINE
     Indication: PRODUCT USED FOR UNKNOWN INDICATION
     Dosage: UNK
     Route: 065
  2. QUETIAPINE. [Suspect]
     Active Substance: QUETIAPINE
     Indication: PSYCHOTIC DISORDER
     Dosage: 200 MILLIGRAM
     Route: 048
     Dates: start: 20180911

REACTIONS (1)
  - Photosensitivity reaction [Recovered/Resolved with Sequelae]

NARRATIVE: CASE EVENT DATE: 20190308
